FAERS Safety Report 16963996 (Version 1)
Quarter: 2019Q4

REPORT INFORMATION
  Report Type: Spontaneous
  Country: FR (occurrence: FR)
  Receive Date: 20191026
  Receipt Date: 20191026
  Transmission Date: 20200122
  Serious: Yes (Death, Hospitalization)
  Sender: FDA-Public Use
  Company Number: FR-ACCORD-159177

PATIENT
  Age: 64 Year
  Sex: Male
  Weight: 61 kg

DRUGS (8)
  1. METOCLOPRAMIDE. [Concomitant]
     Active Substance: METOCLOPRAMIDE
  2. FLUOROURACIL ACCORD [Suspect]
     Active Substance: FLUOROURACIL
     Indication: ADENOID CYSTIC CARCINOMA
     Dosage: 6100MG / TREATMENT
     Route: 041
     Dates: start: 20181109, end: 20181109
  3. APREPITANT. [Concomitant]
     Active Substance: APREPITANT
  4. CISPLATIN. [Concomitant]
     Active Substance: CISPLATIN
  5. ONDANSETRON [Concomitant]
     Active Substance: ONDANSETRON
  6. TRAMADOL. [Concomitant]
     Active Substance: TRAMADOL
  7. PARACETAMOL [Concomitant]
     Active Substance: ACETAMINOPHEN
  8. PREDNISONE. [Concomitant]
     Active Substance: PREDNISONE

REACTIONS (2)
  - Fixed eruption [Recovered/Resolved]
  - Off label use [Unknown]

NARRATIVE: CASE EVENT DATE: 20181111
